FAERS Safety Report 9669569 (Version 3)
Quarter: 2014Q1

REPORT INFORMATION
  Report Type: Report from Study
  Country: US (occurrence: US)
  Receive Date: 20131105
  Receipt Date: 20140220
  Transmission Date: 20141002
  Serious: Yes (Death, Hospitalization, Other)
  Sender: FDA-Public Use
  Company Number: US-PFIZER INC-2013306265

PATIENT
  Age: 70 Year
  Sex: Male
  Weight: 126 kg

DRUGS (1)
  1. SUNITINIB MALATE [Suspect]
     Indication: NON-SMALL CELL LUNG CANCER
     Dosage: 37.5 MG, 1X/DAY, CYCLIC (CYCLE=21 DAYS)
     Route: 048
     Dates: start: 20130329, end: 20130912

REACTIONS (10)
  - Atrial fibrillation [Recovered/Resolved]
  - Lymphocyte count decreased [Unknown]
  - Disease progression [Fatal]
  - Non-small cell lung cancer [Fatal]
  - Hypotension [Unknown]
  - Troponin increased [Recovered/Resolved]
  - Myocardial infarction [Recovered/Resolved]
  - Lethargy [Unknown]
  - Platelet count decreased [Unknown]
  - White blood cell count decreased [Unknown]
